FAERS Safety Report 8854744 (Version 1)
Quarter: 2012Q4

REPORT INFORMATION
  Report Type: 
  Country: US (occurrence: US)
  Receive Date: 20121023
  Receipt Date: 20121023
  Transmission Date: 20130627
  Serious: No
  Sender: FDA-Public Use
  Company Number: US-BRISTOL-MYERS SQUIBB COMPANY-16279663

PATIENT
  Sex: Female

DRUGS (1)
  1. MEGACE [Suspect]
     Indication: UTERINE CANCER
     Dosage: 1DF:4 teaspoons 
Total dose:4000mg/D
     Route: 048

REACTIONS (1)
  - Overdose [Unknown]
